FAERS Safety Report 10880474 (Version 6)
Quarter: 2016Q3

REPORT INFORMATION
  Report Type: Spontaneous
  Country: SE (occurrence: SE)
  Receive Date: 20150303
  Receipt Date: 20160810
  Transmission Date: 20161109
  Serious: Yes (Death)
  Sender: FDA-Public Use
  Company Number: SE-ROCHE-1546729

PATIENT
  Age: 77 Year
  Sex: Male
  Weight: 71 kg

DRUGS (4)
  1. MORPHINE [Concomitant]
     Active Substance: MORPHINE
  2. BEHEPAN [Concomitant]
     Active Substance: HYDROXOCOBALAMIN
  3. MADOPAR DEPOT [Concomitant]
     Active Substance: BENSERAZIDE HYDROCHLORIDE\LEVODOPA
     Route: 065
  4. ACTILYSE [Suspect]
     Active Substance: ALTEPLASE
     Indication: ISCHAEMIC STROKE
     Route: 042
     Dates: start: 20150212, end: 20150212

REACTIONS (3)
  - Aortic dissection [Fatal]
  - Hypotension [Fatal]
  - Heart rate decreased [Fatal]

NARRATIVE: CASE EVENT DATE: 20150212
